FAERS Safety Report 7117000-3 (Version None)
Quarter: 2010Q4

REPORT INFORMATION
  Report Type: 
  Country: None (occurrence: None)
  Receive Date: 20101115
  Receipt Date: 20101029
  Transmission Date: 20110411
  Serious: Yes (Hospitalization)
  Sender: FDA-Public Use
  Company Number: 019262

PATIENT
  Sex: Female
  Weight: 63.5 kg

DRUGS (10)
  1. CIMZIA [Suspect]
     Indication: CROHN'S DISEASE
     Dosage: 400 MG 1X/4 WEEKS SUBCUTANEOUS
     Route: 058
     Dates: start: 20100809
  2. NORVASC [Concomitant]
  3. CLONIDINE [Concomitant]
  4. METOPROLOL [Concomitant]
  5. PREDNISONE [Concomitant]
  6. POTASSIUM CHLORIDE [Concomitant]
  7. MAGNESIUM [Concomitant]
  8. COUMADIN [Concomitant]
  9. FENTANYL [Concomitant]
  10. LOVENOX [Concomitant]

REACTIONS (12)
  - ABDOMINAL PAIN [None]
  - BLEPHAROSPASM [None]
  - BLOOD PRESSURE INCREASED [None]
  - DRUG LEVEL INCREASED [None]
  - FATIGUE [None]
  - FREQUENT BOWEL MOVEMENTS [None]
  - HYPOAESTHESIA [None]
  - HYPOAESTHESIA FACIAL [None]
  - MALABSORPTION [None]
  - MEDICATION RESIDUE [None]
  - TRANSIENT ISCHAEMIC ATTACK [None]
  - UNRESPONSIVE TO STIMULI [None]
